FAERS Safety Report 21973698 (Version 1)
Quarter: 2023Q1

REPORT INFORMATION
  Report Type: Spontaneous
  Country: US (occurrence: None)
  Receive Date: 20230209
  Receipt Date: 20230209
  Transmission Date: 20230417
  Serious: No
  Sender: FDA-Public Use
  Company Number: 2023A034044

PATIENT
  Sex: Female
  Weight: 68.5 kg

DRUGS (1)
  1. BYDUREON BCISE [Suspect]
     Active Substance: EXENATIDE
     Indication: Type 2 diabetes mellitus
     Route: 058
     Dates: start: 20221206

REACTIONS (4)
  - Injection site indentation [Unknown]
  - Medication error [Unknown]
  - Device malfunction [Unknown]
  - Device leakage [Unknown]
